FAERS Safety Report 5394251-X (Version None)
Quarter: 2007Q3

REPORT INFORMATION
  Report Type: 
  Country: None (occurrence: None)
  Receive Date: 20070723
  Receipt Date: 20070517
  Transmission Date: 20080115
  Serious: No
  Sender: FDA-Public Use
  Company Number: A0651782A

PATIENT
  Age: 78 Year
  Sex: Male

DRUGS (6)
  1. AVANDIA [Suspect]
     Route: 048
     Dates: start: 20061201
  2. GLIPIZIDE [Concomitant]
  3. LESCOL [Concomitant]
  4. VALSARTAN [Concomitant]
  5. COCHINEAL [Concomitant]
  6. HYTRIN [Concomitant]

REACTIONS (2)
  - LACRIMATION INCREASED [None]
  - VISUAL DISTURBANCE [None]
